FAERS Safety Report 5640964-1 (Version None)
Quarter: 2008Q1

REPORT INFORMATION
  Report Type: 
  Country: None (occurrence: None)
  Receive Date: 20080227
  Receipt Date: 20080220
  Transmission Date: 20080703
  Serious: Yes (Other)
  Sender: FDA-Public Use
  Company Number: US-ROCHE-548626

PATIENT
  Age: 70 Year
  Sex: Female

DRUGS (3)
  1. BONIVA [Suspect]
     Indication: OSTEOPENIA
     Route: 048
     Dates: start: 20060805, end: 20080201
  2. TEGRETOL [Interacting]
     Route: 065
  3. PRIMIDONE [Interacting]
     Route: 065

REACTIONS (2)
  - CONVULSION [None]
  - DRUG INTERACTION [None]
